FAERS Safety Report 5089442-1 (Version None)
Quarter: 2006Q3

REPORT INFORMATION
  Report Type: 
  Country: None (occurrence: None)
  Receive Date: 20060822
  Receipt Date: 20060818
  Transmission Date: 20061208
  Serious: Yes (Other)
  Sender: FDA-Public Use
  Company Number: HQWYE714818AUG06

PATIENT
  Age: 78 Year
  Sex: Male

DRUGS (3)
  1. CORDARONE [Suspect]
     Indication: ATRIAL FIBRILLATION
     Dosage: UNSPECIFIED LOADING DOSE; SEE IMAGE
     Dates: end: 20050501
  2. ATORVASTATIN CALCIUM [Concomitant]
  3. BISOPROLOL FUMARATE [Concomitant]

REACTIONS (1)
  - BLOOD AMYLASE INCREASED [None]
